FAERS Safety Report 12908371 (Version 1)
Quarter: 2016Q4

REPORT INFORMATION
  Report Type: Spontaneous
  Country: US (occurrence: US)
  Receive Date: 20161103
  Receipt Date: 20161103
  Transmission Date: 20170207
  Serious: Yes (Other)
  Sender: FDA-Public Use
  Company Number: US-SUNOVION-2016SUN002730

PATIENT
  Sex: Female
  Weight: 119.27 kg

DRUGS (3)
  1. LATUDA [Suspect]
     Active Substance: LURASIDONE HYDROCHLORIDE
     Indication: BIPOLAR I DISORDER
     Dosage: 60 MG, QD
     Route: 048
     Dates: start: 201503, end: 20160707
  2. LAMICTAL [Concomitant]
     Active Substance: LAMOTRIGINE
     Dosage: UNK
     Dates: start: 20160707
  3. EFFEXOR XR [Suspect]
     Active Substance: VENLAFAXINE HYDROCHLORIDE
     Indication: DEPRESSION
     Dosage: 450 MG, QD
     Route: 048
     Dates: end: 20160707

REACTIONS (9)
  - Drug ineffective [Unknown]
  - Eating disorder symptom [Unknown]
  - Dry eye [Unknown]
  - Dry mouth [Unknown]
  - Headache [Unknown]
  - Corneal erosion [Unknown]
  - Stomatitis [Unknown]
  - Anaemia [Unknown]
  - Bipolar I disorder [Unknown]
